FAERS Safety Report 19552566 (Version 1)
Quarter: 2021Q3

REPORT INFORMATION
  Report Type: Spontaneous
  Country: US (occurrence: US)
  Receive Date: 20210715
  Receipt Date: 20210715
  Transmission Date: 20211014
  Serious: Yes (Other)
  Sender: FDA-Public Use
  Company Number: US-ROCHE-2867386

PATIENT
  Sex: Female

DRUGS (3)
  1. XELODA [Suspect]
     Active Substance: CAPECITABINE
     Indication: DIVERTICULITIS
     Dosage: (2) 500 MG TABLETS TWICE DAILY ON 7 DAYS OFF 7 ;ONGOING: YES
     Route: 048
     Dates: start: 202106
  2. XELODA [Suspect]
     Active Substance: CAPECITABINE
     Indication: DIVERTICULUM
  3. XELODA [Suspect]
     Active Substance: CAPECITABINE
     Indication: COLON CANCER
     Dosage: 500 MG TABLETS TWICE DAILY ON 14 DAYS OFF 7 ;ONGOING: NO
     Route: 048
     Dates: start: 2015

REACTIONS (8)
  - Off label use [Unknown]
  - Sedation [Not Recovered/Not Resolved]
  - Bladder cancer [Not Recovered/Not Resolved]
  - Nodule [Not Recovered/Not Resolved]
  - Anxiety [Unknown]
  - Peripheral swelling [Not Recovered/Not Resolved]
  - Fatigue [Not Recovered/Not Resolved]
  - Mental impairment [Not Recovered/Not Resolved]

NARRATIVE: CASE EVENT DATE: 2018
